FAERS Safety Report 9412758 (Version 4)
Quarter: 2015Q4

REPORT INFORMATION
  Report Type: Report from Study
  Country: TW (occurrence: TW)
  Receive Date: 20130722
  Receipt Date: 20151109
  Transmission Date: 20160305
  Serious: Yes (Death, Hospitalization, Other)
  Sender: FDA-Public Use
  Company Number: PHHO2013TW009301

PATIENT
  Age: 35 Year
  Sex: Male

DRUGS (24)
  1. SUCCINYLATED GELATIN [Concomitant]
     Active Substance: SUCCINYLATED GELATIN
     Dosage: 500 ML, UNK
     Route: 042
     Dates: start: 20130722, end: 20130723
  2. HYDROCORTISONE. [Concomitant]
     Active Substance: HYDROCORTISONE
     Dosage: 100 MG, 0.5 VIAL
     Route: 042
     Dates: start: 20130723
  3. STRONGER NEO-MINOPHAGEN C [Concomitant]
     Active Substance: AMMONIUM GLYCYRRHIZATE\CYSTEINE HYDROCHLORIDE\GLYCINE
     Dosage: 1 AMP
     Route: 042
     Dates: start: 20130715
  4. SILVER SULFADIAZINE. [Concomitant]
     Active Substance: SILVER SULFADIAZINE
     Dosage: UNK, PRN
     Dates: start: 20130715
  5. COLIMYCIN [Concomitant]
     Dosage: 1 VIAL
     Route: 042
     Dates: start: 20130723
  6. ALBUMIN [Concomitant]
     Active Substance: ALBUMIN (HUMAN)
     Dosage: 1 BT, STAT
     Route: 042
     Dates: start: 20130722
  7. FUROSEMIDE. [Concomitant]
     Active Substance: FUROSEMIDE
     Dosage: 1 AMP
     Route: 042
     Dates: start: 20130715, end: 20130716
  8. ATROPINE. [Concomitant]
     Active Substance: ATROPINE
     Dosage: 1 AMP, STAT
     Route: 042
     Dates: start: 20130724
  9. ACYCLOVIR. [Concomitant]
     Active Substance: ACYCLOVIR
     Dosage: 2 DF, UNK
     Dates: start: 20130722
  10. SUCRALFATE. [Concomitant]
     Active Substance: SUCRALFATE
     Dosage: 1 PK
     Route: 048
     Dates: start: 20130715, end: 20130716
  11. FUROSEMIDE. [Concomitant]
     Active Substance: FUROSEMIDE
     Dosage: 1 AMP
     Route: 042
     Dates: start: 20130719, end: 20130723
  12. ALISKIREN [Suspect]
     Active Substance: ALISKIREN
     Indication: CARDIAC FAILURE
     Dosage: UNK
     Route: 048
     Dates: start: 20100419
  13. PROPYLTHIOURACIL. [Suspect]
     Active Substance: PROPYLTHIOURACIL
  14. XYLOCAINE [Concomitant]
     Active Substance: LIDOCAINE HYDROCHLORIDE
     Dosage: 20AMP
     Route: 042
     Dates: start: 20130722
  15. TRANSAMINE [Concomitant]
     Dosage: 1 AMP
     Route: 042
     Dates: start: 20130715, end: 20130716
  16. PHYTONADIONE. [Concomitant]
     Active Substance: PHYTONADIONE
     Dosage: 10 MG, QD
     Route: 042
     Dates: start: 20130715
  17. ADRENALIN [Concomitant]
     Active Substance: EPINEPHRINE
     Dosage: 1 AMP, STAT
     Route: 042
     Dates: start: 20130723
  18. URSODEOXYCHOLIC ACID [Concomitant]
     Active Substance: URSODIOL
     Dosage: 3
     Route: 048
     Dates: start: 20130715
  19. DIPHENHYDRAMINE. [Concomitant]
     Active Substance: DIPHENHYDRAMINE
     Dosage: 30 MG, 1 AMP, STAT
     Route: 042
  20. FUROSEMIDE. [Concomitant]
     Active Substance: FUROSEMIDE
     Dosage: 1 AMP
     Route: 042
     Dates: start: 20130716, end: 20130719
  21. ENALAPRIL [Suspect]
     Active Substance: ENALAPRIL
     Indication: CARDIAC FAILURE
     Dosage: 20 MG, UNK
     Route: 048
     Dates: start: 20100406
  22. ESOMEPRAZOLE [Concomitant]
     Active Substance: ESOMEPRAZOLE
     Dosage: 1 AMP
     Route: 042
     Dates: start: 20130715
  23. ANIDULAFUNGIN [Concomitant]
     Active Substance: ANIDULAFUNGIN
     Dosage: 2 VIALS
     Route: 042
     Dates: start: 20130723
  24. NYSTATIN. [Concomitant]
     Active Substance: NYSTATIN
     Dosage: UNK
     Dates: start: 20130715, end: 20130722

REACTIONS (4)
  - Acute hepatic failure [Recovering/Resolving]
  - Thyrotoxic crisis [Fatal]
  - Cardiogenic shock [Fatal]
  - Death [Fatal]

NARRATIVE: CASE EVENT DATE: 20130625
